FAERS Safety Report 9037128 (Version 1)
Quarter: 2013Q1

REPORT INFORMATION
  Report Type: Spontaneous
  Country: US (occurrence: US)
  Receive Date: 20130129
  Receipt Date: 20130129
  Transmission Date: 20140127
  Serious: No
  Sender: FDA-Public Use
  Company Number: US-ABBOTT-12P-163-0892355-00

PATIENT
  Sex: Female
  Weight: 59.02 kg

DRUGS (5)
  1. HUMIRA 40 MG/0.8 ML PEN [Suspect]
     Indication: PSORIATIC ARTHROPATHY
     Dates: start: 2010
  2. HUMIRA 40 MG/0.8 ML PEN [Suspect]
     Dates: start: 2009, end: 2009
  3. HUMIRA 40 MG/0.8 ML PEN [Suspect]
     Dates: start: 2009, end: 2010
  4. KLONOPIN [Concomitant]
     Indication: ANXIETY
  5. VICODIN [Concomitant]
     Indication: PAIN

REACTIONS (1)
  - Arthralgia [Recovering/Resolving]
